FAERS Safety Report 15118593 (Version 5)
Quarter: 2018Q3

REPORT INFORMATION
  Report Type: Report from Study
  Country: US (occurrence: US)
  Receive Date: 20180709
  Receipt Date: 20180816
  Transmission Date: 20181010
  Serious: No
  Sender: FDA-Public Use
  Company Number: US-AMGEN-USASL2018091345

PATIENT
  Age: 60 Year
  Sex: Female

DRUGS (1)
  1. ENBREL [Suspect]
     Active Substance: ETANERCEPT
     Indication: RHEUMATOID ARTHRITIS
     Dosage: 50 MG, QWK
     Route: 065

REACTIONS (14)
  - Pain in extremity [Unknown]
  - Injection site pain [Recovered/Resolved]
  - Gait disturbance [Unknown]
  - Drug dose omission [Unknown]
  - Injection site mass [Recovered/Resolved]
  - Injection site rash [Recovered/Resolved]
  - Injection site swelling [Unknown]
  - Sleep disorder due to a general medical condition [Unknown]
  - Wrong technique in product usage process [Unknown]
  - Underdose [Unknown]
  - Stress [Unknown]
  - Blood pressure increased [Recovering/Resolving]
  - Injection site haemorrhage [Unknown]
  - Fear of injection [Unknown]

NARRATIVE: CASE EVENT DATE: 2018
